FAERS Safety Report 12648168 (Version 1)
Quarter: 2016Q3

REPORT INFORMATION
  Report Type: Report from Study
  Country: US (occurrence: US)
  Receive Date: 20160812
  Receipt Date: 20160812
  Transmission Date: 20161109
  Serious: Yes (Hospitalization)
  Sender: FDA-Public Use
  Company Number: US-ASTELLAS-2011001314

PATIENT
  Age: 49 Year
  Sex: Female

DRUGS (4)
  1. ERLOTINIB [Suspect]
     Active Substance: ERLOTINIB
     Indication: NEOPLASM
  2. VISMODEGIB [Suspect]
     Active Substance: VISMODEGIB
     Indication: ADENOCARCINOMA PANCREAS
     Route: 048
     Dates: start: 20090706, end: 20090731
  3. VISMODEGIB [Suspect]
     Active Substance: VISMODEGIB
     Indication: NEOPLASM
  4. ERLOTINIB [Suspect]
     Active Substance: ERLOTINIB
     Indication: ADENOCARCINOMA PANCREAS
     Route: 048
     Dates: start: 20090706, end: 20090731

REACTIONS (2)
  - Pain [Unknown]
  - Abdominal pain [Unknown]

NARRATIVE: CASE EVENT DATE: 20090730
